FAERS Safety Report 6496849-4 (Version None)
Quarter: 2009Q4

REPORT INFORMATION
  Report Type: 
  Country: None (occurrence: None)
  Receive Date: 20091125
  Receipt Date: 20081211
  Transmission Date: 20100525
  Serious: Yes (Other)
  Sender: FDA-Public Use
  Company Number: 2008BH013755

PATIENT
  Age: 87 Year
  Sex: Male
  Weight: 77.1115 kg

DRUGS (2)
  1. DIANEAL [Suspect]
     Indication: PERITONEAL DIALYSIS
     Dosage: ; EVERY DAY ; IP
     Route: 033
     Dates: start: 20071217
  2. STOOL SOFTENER [Concomitant]

REACTIONS (2)
  - CONSTIPATION [None]
  - PERITONITIS BACTERIAL [None]
